FAERS Safety Report 7291398-8 (Version None)
Quarter: 2011Q1

REPORT INFORMATION
  Report Type: 
  Country: None (occurrence: None)
  Receive Date: 20110214
  Receipt Date: 20110203
  Transmission Date: 20110831
  Serious: Yes (Death, Hospitalization, Disabling)
  Sender: FDA-Public Use
  Company Number: B0698488A

PATIENT
  Sex: Male
  Weight: 59 kg

DRUGS (21)
  1. SOLU-MEDROL [Suspect]
     Indication: IMMUNOSUPPRESSION
     Dosage: 60MG PER DAY
     Route: 042
     Dates: start: 20020728, end: 20020927
  2. GASTER [Concomitant]
     Dosage: 20MG PER DAY
     Route: 048
     Dates: start: 20020720, end: 20020923
  3. MEYLON [Concomitant]
     Dosage: 80ML PER DAY
     Route: 042
     Dates: start: 20020724, end: 20020727
  4. URSO 250 [Concomitant]
     Dosage: 300MG PER DAY
     Route: 048
     Dates: start: 20020720, end: 20020923
  5. TACROLIMUS [Suspect]
     Indication: IMMUNOSUPPRESSION
     Dosage: 1.2MG PER DAY
     Route: 048
     Dates: start: 20020728, end: 20020924
  6. CELLCEPT [Suspect]
     Indication: IMMUNOSUPPRESSION
     Dosage: 1000MG PER DAY
     Route: 048
     Dates: start: 20020805, end: 20020930
  7. CRAVIT [Concomitant]
     Dosage: 300MG PER DAY
     Route: 048
     Dates: start: 20020720, end: 20020724
  8. KYTRIL [Concomitant]
     Dosage: 3MG PER DAY
     Route: 042
     Dates: start: 20020721, end: 20020727
  9. BROACT [Concomitant]
     Dosage: 4G PER DAY
     Route: 042
     Dates: start: 20020803, end: 20020807
  10. AZACTAM [Concomitant]
     Dosage: 4G PER DAY
     Dates: start: 20020803, end: 20020814
  11. DEPAKENE [Concomitant]
     Dosage: 400MG PER DAY
     Route: 048
     Dates: start: 20020719, end: 20020724
  12. ZOVIRAX [Concomitant]
     Dosage: 1000MG PER DAY
     Route: 048
     Dates: start: 20020720, end: 20020905
  13. IMMUNE GLOBULIN INTRAVENOUS (HUMAN) [Concomitant]
     Dosage: 10G PER DAY
     Route: 042
     Dates: start: 20020728, end: 20020927
  14. GRAN [Concomitant]
     Dates: start: 20020803, end: 20020805
  15. SELBEX [Concomitant]
     Dosage: 150MG PER DAY
     Route: 048
     Dates: start: 20020720, end: 20020724
  16. FUNGIZONE [Concomitant]
     Dosage: 600MG PER DAY
     Route: 048
     Dates: start: 20020815, end: 20020822
  17. ALKERAN [Suspect]
     Indication: STEM CELL TRANSPLANT
     Dosage: 70MGM2 PER DAY
     Route: 042
     Dates: start: 20020725, end: 20020727
  18. BUSULFAN [Suspect]
     Indication: STEM CELL TRANSPLANT
     Dosage: 4MGM2 PER DAY
     Route: 048
     Dates: start: 20020721, end: 20020724
  19. ISCOTIN [Concomitant]
     Dosage: 300MG PER DAY
     Route: 048
     Dates: start: 20020720, end: 20020724
  20. MEROPENEM [Concomitant]
     Dosage: 2G PER DAY
     Route: 042
     Dates: start: 20020808, end: 20020814
  21. DIFLUCAN [Concomitant]
     Dosage: 200MG PER DAY
     Route: 048
     Dates: start: 20020720, end: 20020814

REACTIONS (7)
  - VENOOCCLUSIVE LIVER DISEASE [None]
  - ALANINE AMINOTRANSFERASE INCREASED [None]
  - BLOOD BILIRUBIN INCREASED [None]
  - PNEUMONIA [None]
  - ALTERED STATE OF CONSCIOUSNESS [None]
  - SEPSIS [None]
  - ASPARTATE AMINOTRANSFERASE INCREASED [None]
